FAERS Safety Report 15099046 (Version 4)
Quarter: 2018Q3

REPORT INFORMATION
  Report Type: Report from Study
  Country: US (occurrence: US)
  Receive Date: 20180702
  Receipt Date: 20180829
  Transmission Date: 20181010
  Serious: Yes (Hospitalization)
  Sender: FDA-Public Use
  Company Number: US-ALEXION PHARMACEUTICALS INC.-A201808203

PATIENT
  Age: 20 Year
  Sex: Female
  Weight: 59 kg

DRUGS (17)
  1. STRENSIQ [Suspect]
     Active Substance: ASFOTASE ALFA
     Dosage: 110 MG, UNK
     Route: 058
     Dates: start: 201801
  2. MOBIC [Concomitant]
     Active Substance: MELOXICAM
     Indication: PRODUCT USED FOR UNKNOWN INDICATION
     Dosage: UNK
     Route: 065
  3. MIRALAX [Concomitant]
     Active Substance: POLYETHYLENE GLYCOL 3350
     Indication: CONSTIPATION
     Dosage: 1 CAPFUL, PRN
     Route: 048
     Dates: start: 2014
  4. COLCHICINE. [Concomitant]
     Active Substance: COLCHICINE
     Indication: PRODUCT USED FOR UNKNOWN INDICATION
     Dosage: UNK
     Route: 065
  5. ZIANA [Concomitant]
     Active Substance: CLINDAMYCIN PHOSPHATE\TRETINOIN
     Indication: ACNE
     Dosage: 1 APPLICATION, QD
     Route: 061
     Dates: start: 2013
  6. STRENSIQ [Suspect]
     Active Substance: ASFOTASE ALFA
     Dosage: 120 MG/ML, Q MON, WED, FRI
     Route: 058
     Dates: start: 20171122
  7. AZULFIDINE [Concomitant]
     Active Substance: SULFASALAZINE
     Indication: SPONDYLITIS
     Dosage: UNK
     Route: 065
     Dates: start: 20161212
  8. BACTROBAN [Concomitant]
     Active Substance: MUPIROCIN\MUPIROCIN CALCIUM
     Indication: CHEST WALL ABSCESS
     Dosage: 1 APPLICATION, PRN
     Route: 061
     Dates: start: 20170515
  9. DEPO?MEDROL [Concomitant]
     Active Substance: METHYLPREDNISOLONE ACETATE
     Indication: SPONDYLITIS
     Dosage: 80 MG, PRN
     Route: 030
     Dates: start: 2016
  10. BACTRIM [Concomitant]
     Active Substance: SULFAMETHOXAZOLE\TRIMETHOPRIM
     Indication: CHEST WALL ABSCESS
     Dosage: 1 TAB, BID
     Route: 048
     Dates: start: 20170515
  11. STRENSIQ [Suspect]
     Active Substance: ASFOTASE ALFA
     Indication: HYPOPHOSPHATASIA
     Dosage: 2 MG/KG, TIW
     Route: 058
     Dates: start: 20161026, end: 201701
  12. CLARITIN [Concomitant]
     Active Substance: LORATADINE
     Indication: HYPERSENSITIVITY
     Dosage: 1 TAB, QD
     Route: 048
     Dates: start: 20160726
  13. BENADRYL [Concomitant]
     Active Substance: DIPHENHYDRAMINE HYDROCHLORIDE
     Indication: INSOMNIA
     Dosage: 1 TAB, PRN
     Route: 048
     Dates: start: 2017
  14. IBUPROFEN. [Concomitant]
     Active Substance: IBUPROFEN
     Indication: MYALGIA
     Dosage: 400 MG, PRN
     Route: 048
     Dates: start: 2013
  15. CONCERTA [Concomitant]
     Active Substance: METHYLPHENIDATE HYDROCHLORIDE
     Indication: ATTENTION DEFICIT/HYPERACTIVITY DISORDER
     Dosage: 36 MG, QD
     Route: 048
     Dates: start: 20161212
  16. ALBUTEROL                          /00139501/ [Concomitant]
     Active Substance: ALBUTEROL
     Indication: ASTHMA
     Dosage: 2 PUFF, PRN
     Route: 050
     Dates: start: 2013
  17. RANITIDINE. [Concomitant]
     Active Substance: RANITIDINE
     Indication: PRODUCT USED FOR UNKNOWN INDICATION
     Dosage: UNK
     Route: 065

REACTIONS (1)
  - Substance abuse [Recovered/Resolved]

NARRATIVE: CASE EVENT DATE: 201802
